FAERS Safety Report 9872791 (Version 2)
Quarter: 2014Q1

REPORT INFORMATION
  Report Type: Other
  Country: US (occurrence: US)
  Receive Date: 20140206
  Receipt Date: 20140206
  Transmission Date: 20141002
  Serious: No
  Sender: FDA-Public Use
  Company Number: US-ACORDA-ACO_100437_2013

PATIENT
  Age: 66 Year
  Sex: Male

DRUGS (2)
  1. AMPYRA [Suspect]
     Indication: GAIT DISTURBANCE
     Dosage: 10 MG, BID
     Route: 048
     Dates: start: 201311, end: 201312
  2. BACLOFEN [Concomitant]
     Indication: MUSCLE SPASMS
     Dosage: UNK UNK, PRN
     Route: 048

REACTIONS (1)
  - Therapeutic response unexpected [Recovering/Resolving]
